FAERS Safety Report 25796775 (Version 1)
Quarter: 2025Q3

REPORT INFORMATION
  Report Type: Spontaneous
  Country: US (occurrence: US)
  Receive Date: 20250912
  Receipt Date: 20250912
  Transmission Date: 20251021
  Serious: No
  Sender: ANI
  Company Number: US-ANIPHARMA-2025-US-018297

PATIENT
  Age: 72 Year
  Sex: Male

DRUGS (15)
  1. CORTICOTROPIN [Suspect]
     Active Substance: CORTICOTROPIN
     Indication: Dry eye
     Route: 058
     Dates: start: 20250403
  2. BUSPIRONE HCL [Concomitant]
     Active Substance: BUSPIRONE HYDROCHLORIDE
  3. ELIQUIS [Concomitant]
     Active Substance: APIXABAN
  4. AZASITE [Concomitant]
     Active Substance: AZITHROMYCIN MONOHYDRATE
  5. ERYTHROMYCIN [Concomitant]
     Active Substance: ERYTHROMYCIN
  6. MIEBO [Concomitant]
     Active Substance: PERFLUOROHEXYLOCTANE
  7. ROSUVASTATIN CALCIUM [Concomitant]
     Active Substance: ROSUVASTATIN CALCIUM
  8. CREATINE [Concomitant]
     Active Substance: CREATINE
  9. |SOTALOL HYDROCHLORIDE [Concomitant]
  10. RESTASIS [Concomitant]
     Active Substance: CYCLOSPORINE
  11. TOBRAMYCIN AND DEXAMETHASONE [Concomitant]
     Active Substance: DEXAMETHASONE\TOBRAMYCIN
  12. LUMIFY [Concomitant]
     Active Substance: BRIMONIDINE TARTRATE
  13. PANTOPRAZOLE SODIUM [Concomitant]
     Active Substance: PANTOPRAZOLE SODIUM
  14. TADALAFIL [Concomitant]
     Active Substance: TADALAFIL
  15. XDEMVY [Concomitant]
     Active Substance: LOTILANER

REACTIONS (3)
  - Joint swelling [Recovered/Resolved]
  - Increased appetite [Not Recovered/Not Resolved]
  - Energy increased [Not Recovered/Not Resolved]

NARRATIVE: CASE EVENT DATE: 20250408
